APPROVED DRUG PRODUCT: MICONAZOLE NITRATE
Active Ingredient: MICONAZOLE NITRATE
Strength: 200MG
Dosage Form/Route: SUPPOSITORY;VAGINAL
Application: A073508 | Product #001 | TE Code: AB
Applicant: ACTAVIS PHARMA INC AN INDIRECT WHOLLY OWNED SUB OF TEVA PHARMACEUTICALS USA INC
Approved: Nov 19, 1993 | RLD: No | RS: No | Type: RX